FAERS Safety Report 4544672-X (Version None)
Quarter: 2004Q4

REPORT INFORMATION
  Report Type: 
  Country: None (occurrence: None)
  Receive Date: 20041230
  Receipt Date: 20041220
  Transmission Date: 20050328
  Serious: Yes (Other)
  Sender: FDA-Public Use
  Company Number: B0362622A

PATIENT
  Age: 3 Year
  Sex: Male

DRUGS (3)
  1. MYLERAN                     (BUSULFAN) [Suspect]
     Indication: MEDULLOBLASTOMA
     Dosage: 150 MG/M2 PER DAY
  2. THIOTEPA [Concomitant]
  3. STEM CELL TRANSPLANT [Concomitant]

REACTIONS (5)
  - DISEASE PROGRESSION [None]
  - GASTROINTESTINAL HAEMORRHAGE [None]
  - PORTAL HYPERTENSION [None]
  - PORTAL VEIN THROMBOSIS [None]
  - VENOOCCLUSIVE LIVER DISEASE [None]
